FAERS Safety Report 15484263 (Version 1)
Quarter: 2018Q4

REPORT INFORMATION
  Report Type: Spontaneous
  Country: US (occurrence: US)
  Receive Date: 20181010
  Receipt Date: 20181010
  Transmission Date: 20190205
  Serious: No
  Sender: FDA-Public Use
  Company Number: US-AKRON, INC.-2055911

PATIENT
  Age: 36 Year
  Sex: Female

DRUGS (1)
  1. LORAZEPAM ORAL CONCENTRATE, USP [Suspect]
     Active Substance: LORAZEPAM

REACTIONS (1)
  - Drug effect decreased [Unknown]
